FAERS Safety Report 16718320 (Version 2)
Quarter: 2019Q3

REPORT INFORMATION
  Report Type: Spontaneous
  Country: US (occurrence: US)
  Receive Date: 20190820
  Receipt Date: 20190821
  Transmission Date: 20191005
  Serious: No
  Sender: FDA-Public Use
  Company Number: US-TEVA-2019-US-1093057

PATIENT
  Sex: Female

DRUGS (1)
  1. TOBRAMYCIN. [Suspect]
     Active Substance: TOBRAMYCIN
     Indication: LUNG INFECTION
     Dosage: TOBRAMYCIN 300MG/5 ML
     Route: 065
     Dates: start: 201904

REACTIONS (7)
  - Fatigue [Unknown]
  - Somnolence [Unknown]
  - Adverse drug reaction [Unknown]
  - Drug ineffective [Unknown]
  - Dizziness [Unknown]
  - Device malfunction [Unknown]
  - Cough [Unknown]

NARRATIVE: CASE EVENT DATE: 201904
